FAERS Safety Report 23464051 (Version 1)
Quarter: 2024Q1

REPORT INFORMATION
  Report Type: Spontaneous
  Country: TR (occurrence: TR)
  Receive Date: 20240201
  Receipt Date: 20240201
  Transmission Date: 20240410
  Serious: Yes (Hospitalization, Other)
  Sender: FDA-Public Use
  Company Number: TR-EPICPHARMA-TR-2024EPCLIT00214

PATIENT
  Sex: Female
  Weight: 3.27 kg

DRUGS (1)
  1. LIDOCAINE HYDROCHLORIDE [Suspect]
     Active Substance: LIDOCAINE HYDROCHLORIDE
     Indication: Foetal exposure during pregnancy
     Route: 064

REACTIONS (2)
  - Methaemoglobinaemia [Recovered/Resolved]
  - Foetal exposure during delivery [Unknown]
